FAERS Safety Report 6652272-0 (Version None)
Quarter: 2010Q1

REPORT INFORMATION
  Report Type: 
  Country: None (occurrence: None)
  Receive Date: 20100323
  Receipt Date: 20100316
  Transmission Date: 20100710
  Serious: Yes (Hospitalization, Other)
  Sender: FDA-Public Use
  Company Number: 10US001287

PATIENT
  Age: 23 Year
  Sex: Female

DRUGS (4)
  1. VALPROIC ACID [Suspect]
     Indication: MYOCLONUS
  2. VALPROIC ACID [Suspect]
     Indication: SIMPLE PARTIAL SEIZURES
  3. LAMOTRIGINE [Concomitant]
  4. LEVETIRAETAM (LEVETIRACETAM) [Concomitant]

REACTIONS (20)
  - ALPERS' DISEASE [None]
  - CEREBELLAR SYNDROME [None]
  - CHOLESTASIS [None]
  - CHROMOSOMAL MUTATION [None]
  - COGNITIVE DISORDER [None]
  - COMPLICATIONS OF TRANSPLANT SURGERY [None]
  - DEAFNESS NEUROSENSORY [None]
  - ENCEPHALOPATHY [None]
  - HEPATIC FAILURE [None]
  - HEPATIC FIBROSIS [None]
  - HEPATIC NECROSIS [None]
  - HEPATOTOXICITY [None]
  - HYPOTONIA [None]
  - LYMPHOCYTIC INFILTRATION [None]
  - MYOCLONUS [None]
  - PERIPHERAL MOTOR NEUROPATHY [None]
  - PNEUMOTHORAX [None]
  - PULMONARY OEDEMA [None]
  - STATUS EPILEPTICUS [None]
  - TREMOR [None]
